FAERS Safety Report 5609344-9 (Version None)
Quarter: 2008Q1

REPORT INFORMATION
  Report Type: 
  Country: None (occurrence: None)
  Receive Date: 20080131
  Receipt Date: 20080122
  Transmission Date: 20080703
  Serious: Yes (Hospitalization)
  Sender: FDA-Public Use
  Company Number: FR-ELI_LILLY_AND_COMPANY-FR200801004739

PATIENT
  Age: 78 Year
  Sex: Female

DRUGS (3)
  1. FORTEO [Suspect]
     Indication: OSTEOPOROSIS
     Dosage: 20 UG, DAILY (1/D)
     Route: 058
     Dates: start: 20070521
  2. CLOFIBRATE [Concomitant]
     Indication: HYPERCHOLESTEROLAEMIA
  3. BIPRETERAX [Concomitant]
     Indication: HYPERTENSION

REACTIONS (1)
  - BASAL CELL CARCINOMA [None]
